FAERS Safety Report 19351625 (Version 1)
Quarter: 2021Q2

REPORT INFORMATION
  Report Type: Spontaneous
  Country: US (occurrence: US)
  Receive Date: 20210531
  Receipt Date: 20210531
  Transmission Date: 20210717
  Serious: No
  Sender: FDA-Public Use
  Company Number: US-SA-2021SA165288

PATIENT
  Sex: Female

DRUGS (3)
  1. METFORMIN [Concomitant]
     Active Substance: METFORMIN HYDROCHLORIDE
     Dosage: UNK
     Route: 065
  2. LANTUS SOLOSTAR [Suspect]
     Active Substance: INSULIN GLARGINE
     Dosage: HER DOSE IS 30 UNITS AND SOMETIMES SHE ONLY HAS TO TAKE 15 OR 20 UNITS
     Route: 065
     Dates: start: 202011
  3. ACTOS [Concomitant]
     Active Substance: PIOGLITAZONE HYDROCHLORIDE
     Dosage: UNK
     Route: 065

REACTIONS (6)
  - Injection site mass [Unknown]
  - Injection site pain [Unknown]
  - Injection site paraesthesia [Unknown]
  - Product storage error [Unknown]
  - Feeling abnormal [Unknown]
  - Incorrect dose administered [Unknown]
